FAERS Safety Report 10420293 (Version 1)
Quarter: 2014Q3

REPORT INFORMATION
  Report Type: Report from Study
  Country: US (occurrence: None)
  Receive Date: 20140804
  Receipt Date: 20140804
  Transmission Date: 20150326
  Serious: Yes (Death)
  Sender: FDA-Public Use
  Company Number: 2013US008736

PATIENT
  Age: 56 Year
  Sex: Male
  Weight: 93.9 kg

DRUGS (6)
  1. SPIRIVA [Concomitant]
     Active Substance: TIOTROPIUM BROMIDE MONOHYDRATE
  2. NUVIGIL [Concomitant]
     Active Substance: ARMODAFINIL
  3. GLASSIA [Suspect]
     Active Substance: .ALPHA.1-PROTEINASE INHIBITOR HUMAN
     Indication: ALPHA-1 ANTI-TRYPSIN DEFICIENCY
     Route: 042
  4. VIAGRA [Concomitant]
     Active Substance: SILDENAFIL CITRATE
  5. COMBIVENT (IPRATROPIUM BROMIDE, SALBUTAMOL SULFATE) [Concomitant]
  6. FORADIL [Concomitant]
     Active Substance: FORMOTEROL FUMARATE

REACTIONS (1)
  - Death [None]

NARRATIVE: CASE EVENT DATE: 201301
